FAERS Safety Report 6082248-6 (Version None)
Quarter: 2009Q1

REPORT INFORMATION
  Report Type: 
  Country: None (occurrence: None)
  Receive Date: 20090121
  Receipt Date: 20081205
  Transmission Date: 20090719
  Serious: Yes (Other)
  Sender: FDA-Public Use
  Company Number: WWISSUE-242

PATIENT
  Sex: Female

DRUGS (1)
  1. NAPROXEN [Suspect]
     Indication: ARTHROPATHY
     Dates: start: 20081022, end: 20081122

REACTIONS (1)
  - INFLUENZA LIKE ILLNESS [None]
